FAERS Safety Report 8290114-0 (Version None)
Quarter: 2012Q2

REPORT INFORMATION
  Report Type: 
  Country: None (occurrence: None)
  Receive Date: 20120417
  Receipt Date: 20120403
  Transmission Date: 20120825
  Serious: Yes (Hospitalization)
  Sender: FDA-Public Use
  Company Number: PHHO2009GB10461

PATIENT
  Sex: Male
  Weight: 65 kg

DRUGS (4)
  1. EVEROLIMUS [Suspect]
     Indication: LIVER TRANSPLANT
     Dosage: 4 MG, BID
     Route: 048
     Dates: start: 20090311
  2. ASPIRIN [Concomitant]
  3. PREDNISOLONE [Concomitant]
     Dosage: 5 MG, QD
     Route: 048
  4. TACROLIMUS [Suspect]
     Indication: LIVER TRANSPLANT
     Dosage: UNK
     Dates: start: 20090301

REACTIONS (3)
  - LIVER FUNCTION TEST ABNORMAL [None]
  - LIVER TRANSPLANT REJECTION [None]
  - DRUG INEFFECTIVE [None]
